FAERS Safety Report 15729095 (Version 2)
Quarter: 2019Q1

REPORT INFORMATION
  Report Type: Spontaneous
  Country: US (occurrence: US)
  Receive Date: 20181217
  Receipt Date: 20190102
  Transmission Date: 20190417
  Serious: No
  Sender: FDA-Public Use
  Company Number: US-AMGEN-USASP2018178561

PATIENT
  Age: 45 Year
  Sex: Female
  Weight: 48 kg

DRUGS (3)
  1. AIMOVIG [Suspect]
     Active Substance: ERENUMAB-AOOE
     Indication: MIGRAINE
     Dosage: 70 MG, UNK
     Route: 058
     Dates: start: 20180801, end: 20180901
  2. AIMOVIG [Suspect]
     Active Substance: ERENUMAB-AOOE
     Dosage: 140 MG, UNK
     Route: 058
     Dates: start: 20181001, end: 20181101
  3. BOTOX [Concomitant]
     Active Substance: ONABOTULINUMTOXINA
     Indication: MIGRAINE
     Dosage: 155 UNITS, Q3MO
     Dates: start: 20160122

REACTIONS (2)
  - Migraine [Recovered/Resolved]
  - Allodynia [Recovered/Resolved]

NARRATIVE: CASE EVENT DATE: 2018
